FAERS Safety Report 25882484 (Version 1)
Quarter: 2025Q4

REPORT INFORMATION
  Report Type: Spontaneous
  Country: CN (occurrence: CN)
  Receive Date: 20251006
  Receipt Date: 20251006
  Transmission Date: 20260117
  Serious: Yes (Disabling)
  Sender: ROCHE
  Company Number: CN-CHEPLA-2025011297

PATIENT
  Age: 61 Year
  Weight: 40 kg

DRUGS (8)
  1. BEVACIZUMAB [Suspect]
     Active Substance: BEVACIZUMAB
     Indication: Rectal cancer
     Dosage: APPROVAL NO. GYZZ S20210020
     Route: 042
     Dates: start: 20250910, end: 20250910
  2. BEVACIZUMAB [Suspect]
     Active Substance: BEVACIZUMAB
     Indication: Myelosuppression
     Dosage: PAST DRUG
     Route: 042
  3. XELODA [Suspect]
     Active Substance: CAPECITABINE
     Indication: Rectal cancer
     Dosage: 1G BID D1-D7; APPROVAL NO. GYZZ H20073024
     Route: 048
     Dates: start: 20250910, end: 20250916
  4. XELODA [Suspect]
     Active Substance: CAPECITABINE
     Dosage: PAST DRUG
     Route: 048
  5. IRINOTECAN HYDROCHLORIDE [Suspect]
     Active Substance: IRINOTECAN HYDROCHLORIDE
     Indication: Rectal cancer
     Dosage: 230 MG QD; APPROVAL NO. GYZZ H20084571
     Route: 042
     Dates: start: 20250910, end: 20250910
  6. IRINOTECAN HYDROCHLORIDE [Suspect]
     Active Substance: IRINOTECAN HYDROCHLORIDE
     Indication: Myelosuppression
     Dosage: PAST DRUG
     Route: 042
  7. SODIUM CHLORIDE [Concomitant]
     Active Substance: SODIUM CHLORIDE
     Indication: Medication dilution
     Dosage: 250 ML QD IVGTT D1; APPROVAL NO. GYZZ H20113064
     Route: 042
     Dates: start: 20250910, end: 20250910
  8. SODIUM CHLORIDE [Concomitant]
     Active Substance: SODIUM CHLORIDE
     Dosage: 100 ML QD IVGTT D1; APPROVAL NO. GYZZ H20003204
     Route: 042
     Dates: start: 20250910, end: 20250910

REACTIONS (1)
  - Myelosuppression [Recovering/Resolving]

NARRATIVE: CASE EVENT DATE: 20250919
